FAERS Safety Report 12274564 (Version 1)
Quarter: 2016Q2

REPORT INFORMATION
  Report Type: Spontaneous
  Country: US (occurrence: US)
  Receive Date: 20160415
  Receipt Date: 20160415
  Transmission Date: 20160815
  Serious: No
  Sender: FDA-Public Use
  Company Number: US-ALLERGAN-1505442US

PATIENT
  Sex: Female

DRUGS (3)
  1. LIQUIGEL [Concomitant]
     Dosage: 2 GTT, QHS
     Route: 047
  2. LUMIGAN [Suspect]
     Active Substance: BIMATOPROST
     Indication: PRODUCT USED FOR UNKNOWN INDICATION
     Dosage: 2 GTT, QHS
     Route: 047
     Dates: start: 2014
  3. REFRESH OPTIVE [Concomitant]
     Active Substance: CARBOXYMETHYLCELLULOSE SODIUM\GLYCERIN
     Indication: EYE LUBRICATION THERAPY
     Dosage: UNK UNK, TID
     Route: 047

REACTIONS (2)
  - Intraocular pressure increased [Recovered/Resolved]
  - Product quality issue [Unknown]
